FAERS Safety Report 19620565 (Version 1)
Quarter: 2021Q3

REPORT INFORMATION
  Report Type: Spontaneous
  Country: US (occurrence: US)
  Receive Date: 20210728
  Receipt Date: 20210728
  Transmission Date: 20211014
  Serious: Yes (Disabling)
  Sender: FDA-Public Use
  Company Number: None

PATIENT
  Age: 52 Year
  Sex: Female
  Weight: 83.25 kg

DRUGS (9)
  1. METFORMIN [Concomitant]
     Active Substance: METFORMIN HYDROCHLORIDE
  2. VITAMIN K [Concomitant]
     Active Substance: PHYTONADIONE
  3. L?ARGININE [Concomitant]
     Active Substance: ARGININE
  4. ACIDOPHILUS [Concomitant]
     Active Substance: LACTOBACILLUS ACIDOPHILUS
  5. PREGABALIN. [Suspect]
     Active Substance: PREGABALIN
     Indication: TRIGEMINAL NEURALGIA
     Dosage: ?          QUANTITY:1 CAPSULE(S);?
     Route: 048
     Dates: start: 20210425, end: 20210517
  6. MAGNESIUM [Concomitant]
     Active Substance: MAGNESIUM
  7. RIFAXIMIN. [Concomitant]
     Active Substance: RIFAXIMIN
  8. VITAMIN D [Concomitant]
     Active Substance: VITAMIN D NOS
  9. DOCUSATE SODIUM. [Concomitant]
     Active Substance: DOCUSATE SODIUM

REACTIONS (2)
  - Somnolence [None]
  - Seizure [None]

NARRATIVE: CASE EVENT DATE: 20210504
